FAERS Safety Report 14974689 (Version 1)
Quarter: 2018Q2

REPORT INFORMATION
  Report Type: Spontaneous
  Country: ES (occurrence: ES)
  Receive Date: 20180605
  Receipt Date: 20180605
  Transmission Date: 20180711
  Serious: Yes (Other)
  Sender: FDA-Public Use
  Company Number: ES-TEVA-2018-ES-900140

PATIENT

DRUGS (1)
  1. OXALIPLATIN. [Suspect]
     Active Substance: OXALIPLATIN
     Dosage: OXALIPLATINO TEVA
     Route: 042
     Dates: start: 20180507

REACTIONS (10)
  - Chest pain [Unknown]
  - Blepharospasm [Unknown]
  - Gait disturbance [Unknown]
  - Arthralgia [Unknown]
  - Laryngospasm [Unknown]
  - Aphasia [Unknown]
  - Neuropathy peripheral [Unknown]
  - Dizziness [Unknown]
  - Administration site pain [Unknown]
  - Pain in jaw [Unknown]

NARRATIVE: CASE EVENT DATE: 20180507
